FAERS Safety Report 9614070 (Version 1)
Quarter: 2013Q4

REPORT INFORMATION
  Report Type: Report from Study
  Country: US (occurrence: US)
  Receive Date: 20131011
  Receipt Date: 20131011
  Transmission Date: 20140711
  Serious: Yes (Other)
  Sender: FDA-Public Use
  Company Number: US-ROCHE-1287141

PATIENT
  Sex: Male

DRUGS (2)
  1. XELODA [Suspect]
     Indication: MALIGNANT MELANOMA OF SITES OTHER THAN SKIN
     Route: 048
  2. XELODA [Suspect]
     Route: 048
     Dates: start: 20130829

REACTIONS (1)
  - Disease progression [Unknown]
